FAERS Safety Report 19086988 (Version 1)
Quarter: 2021Q2

REPORT INFORMATION
  Report Type: Spontaneous
  Country: US (occurrence: US)
  Receive Date: 20210402
  Receipt Date: 20210402
  Transmission Date: 20210717
  Serious: Yes (Other)
  Sender: FDA-Public Use
  Company Number: US-AMNEAL PHARMACEUTICALS-2020-AMRX-02532

PATIENT
  Sex: Female

DRUGS (5)
  1. BUDESONIDE. [Suspect]
     Active Substance: BUDESONIDE
     Indication: AUTOIMMUNE HEPATITIS
     Dosage: 3 MILLIGRAM, 3 /DAY
     Route: 065
     Dates: start: 2020
  2. AZATHIOPRINE. [Suspect]
     Active Substance: AZATHIOPRINE
     Dosage: 100 MILLIGRAM, 1 /DAY
     Route: 048
     Dates: start: 2020
  3. SYNTHROID [Concomitant]
     Active Substance: LEVOTHYROXINE SODIUM
     Indication: PRODUCT USED FOR UNKNOWN INDICATION
     Dosage: UNK
     Route: 065
  4. AZATHIOPRINE. [Suspect]
     Active Substance: AZATHIOPRINE
     Indication: AUTOIMMUNE HEPATITIS
     Dosage: TABLET, UNK
     Route: 065
     Dates: start: 1996
  5. AZATHIOPRINE. [Suspect]
     Active Substance: AZATHIOPRINE
     Indication: AUTOIMMUNE HEPATITIS
     Dosage: 150 MILLIGRAM, 1 /DAY
     Route: 048

REACTIONS (3)
  - Product use in unapproved indication [Unknown]
  - Squamous cell carcinoma [Not Recovered/Not Resolved]
  - Weight increased [Not Recovered/Not Resolved]

NARRATIVE: CASE EVENT DATE: 2020
